FAERS Safety Report 16760847 (Version 7)
Quarter: 2020Q3

REPORT INFORMATION
  Report Type: Report from Study
  Country: US (occurrence: US)
  Receive Date: 20190830
  Receipt Date: 20200819
  Transmission Date: 20201102
  Serious: Yes (Hospitalization)
  Sender: FDA-Public Use
  Company Number: US-ACTELION-A-NJ2019-194503

PATIENT
  Sex: Female
  Weight: 104.31 kg

DRUGS (6)
  1. UPTRAVI [Suspect]
     Active Substance: SELEXIPAG
     Dosage: UNK
     Route: 048
  2. ELIQUIS [Concomitant]
     Active Substance: APIXABAN
  3. UPTRAVI [Suspect]
     Active Substance: SELEXIPAG
     Dosage: 1600 MCG, BID
     Route: 048
  4. UPTRAVI [Suspect]
     Active Substance: SELEXIPAG
     Indication: PULMONARY ARTERIAL HYPERTENSION
     Dosage: 200 MCG BID
     Route: 048
     Dates: end: 20190911
  5. UPTRAVI [Suspect]
     Active Substance: SELEXIPAG
     Dosage: 600 MCG, BID
     Route: 048
  6. SILDENAFIL CITRATE. [Concomitant]
     Active Substance: SILDENAFIL CITRATE

REACTIONS (17)
  - Haematochezia [Unknown]
  - Internal haemorrhage [Unknown]
  - Insomnia [Unknown]
  - Full blood count decreased [Unknown]
  - Hospitalisation [Unknown]
  - Haemophilia [Unknown]
  - Confusional state [Unknown]
  - Pulmonary hypertension [Unknown]
  - Asthenia [Unknown]
  - Anxiety [Unknown]
  - Therapy change [Unknown]
  - Muscular weakness [Unknown]
  - Sleep disorder [Unknown]
  - Anaemia [Unknown]
  - Pulmonary arterial pressure abnormal [Unknown]
  - Cardiac failure [Unknown]
  - Fluid retention [Unknown]
